FAERS Safety Report 7207323-1 (Version None)
Quarter: 2010Q4

REPORT INFORMATION
  Report Type: 
  Country: None (occurrence: None)
  Receive Date: 20101221
  Receipt Date: 20101208
  Transmission Date: 20110411
  Serious: Yes (Hospitalization)
  Sender: FDA-Public Use
  Company Number: 023457

PATIENT
  Sex: Female

DRUGS (1)
  1. CIMZIA [Suspect]
     Dosage: 400 MG 1X WEEKS, PFS SUBCUTANEOUS
     Route: 058
     Dates: start: 20101001

REACTIONS (1)
  - APPENDICECTOMY [None]
